FAERS Safety Report 12400442 (Version 1)
Quarter: 2016Q2

REPORT INFORMATION
  Report Type: Spontaneous
  Country: US (occurrence: None)
  Receive Date: 20160524
  Receipt Date: 20160524
  Transmission Date: 20160815
  Serious: Yes (Disabling)
  Sender: FDA-Public Use
  Company Number: None

PATIENT
  Age: 14 Year
  Sex: Male

DRUGS (1)
  1. LEVAQUIN [Suspect]
     Active Substance: LEVOFLOXACIN
     Indication: PNEUMONIA
     Route: 048

REACTIONS (7)
  - Contraindicated drug administered [None]
  - Urticaria [None]
  - Depression [None]
  - Abdominal pain [None]
  - Rash [None]
  - Gastrointestinal disorder [None]
  - Food allergy [None]

NARRATIVE: CASE EVENT DATE: 20140801
